FAERS Safety Report 16144479 (Version 2)
Quarter: 2019Q3

REPORT INFORMATION
  Report Type: Spontaneous
  Country: FR (occurrence: FR)
  Receive Date: 20190401
  Receipt Date: 20190710
  Transmission Date: 20191004
  Serious: Yes (Hospitalization)
  Sender: FDA-Public Use
  Company Number: FR-SUN PHARMACEUTICAL INDUSTRIES LTD-2019RR-203500

PATIENT
  Age: 86 Year
  Sex: Male
  Weight: 71 kg

DRUGS (8)
  1. SPIRONOLACTONE. [Concomitant]
     Active Substance: SPIRONOLACTONE
     Indication: HYPERTENSION
     Dosage: 25 MILLIGRAM, DAILY
     Route: 048
  2. PARACETAMOL [Concomitant]
     Active Substance: ACETAMINOPHEN
     Indication: PAIN
     Dosage: 500 MILLIGRAM, DAILY
     Route: 048
     Dates: start: 20190102, end: 20190108
  3. BISOPROLOL (FUMARATE DE) [Concomitant]
     Active Substance: BISOPROLOL FUMARATE
     Indication: PRODUCT USED FOR UNKNOWN INDICATION
     Dosage: 1.25 MILLIGRAM, DAILY
     Route: 048
  4. FUROSEMIDE. [Concomitant]
     Active Substance: FUROSEMIDE
     Indication: CARDIAC FAILURE
     Dosage: 80 MILLIGRAM, DAILY
     Route: 048
  5. LOXAPINE BASE [Concomitant]
     Active Substance: LOXAPINE
     Indication: PERSECUTORY DELUSION
     Dosage: 60 GTT, DAILY
     Route: 048
     Dates: start: 20190102, end: 20190103
  6. BRINTELLIX [Interacting]
     Active Substance: VORTIOXETINE HYDROBROMIDE
     Indication: DEPRESSION
     Dosage: 2 DOSAGE FORM, DAILY
     Route: 048
     Dates: start: 201812
  7. KARDEGIC [Interacting]
     Active Substance: ASPIRIN DL-LYSINE
     Indication: CARDIOVASCULAR EVENT PROPHYLAXIS
     Dosage: 1 DOSAGE FORM, DAILY
     Route: 048
  8. CLOPIDOGREL [Suspect]
     Active Substance: CLOPIDOGREL BISULFATE
     Indication: CARDIOVASCULAR EVENT PROPHYLAXIS
     Dosage: 75 MILLIGRAM, DAILY
     Route: 048

REACTIONS (1)
  - Anaemia [Recovering/Resolving]

NARRATIVE: CASE EVENT DATE: 20190103
